FAERS Safety Report 20208259 (Version 2)
Quarter: 2021Q4

REPORT INFORMATION
  Report Type: Report from Study
  Country: CO (occurrence: CO)
  Receive Date: 20211220
  Receipt Date: 20211224
  Transmission Date: 20220303
  Serious: Yes (Hospitalization)
  Sender: FDA-Public Use
  Company Number: CO-JNJFOC-20211234373

PATIENT
  Age: 35 Year
  Sex: Male
  Weight: 55 kg

DRUGS (4)
  1. INVEGA SUSTENNA [Suspect]
     Active Substance: PALIPERIDONE PALMITATE
     Indication: Schizophrenia
     Dosage: DAY 0 DOSE
     Route: 030
     Dates: start: 20211206
  2. INVEGA SUSTENNA [Suspect]
     Active Substance: PALIPERIDONE PALMITATE
  3. INVEGA SUSTENNA [Suspect]
     Active Substance: PALIPERIDONE PALMITATE
  4. DIAZEPAM [Concomitant]
     Active Substance: DIAZEPAM

REACTIONS (4)
  - Protrusion tongue [Recovering/Resolving]
  - Hyperhidrosis [Recovering/Resolving]
  - Dizziness [Recovering/Resolving]
  - Tongue discolouration [Recovering/Resolving]

NARRATIVE: CASE EVENT DATE: 20211206
